FAERS Safety Report 15072940 (Version 1)
Quarter: 2018Q2

REPORT INFORMATION
  Report Type: Spontaneous
  Country: FR (occurrence: FR)
  Receive Date: 20180627
  Receipt Date: 20180627
  Transmission Date: 20180711
  Serious: Yes (Death, Hospitalization)
  Sender: FDA-Public Use
  Company Number: FR-SUN PHARMACEUTICAL INDUSTRIES LTD-2018RR-176739

PATIENT
  Age: 102 Year
  Sex: Female
  Weight: 54 kg

DRUGS (7)
  1. ELIQUIS 2,5 MG, COMPRIME PELLICULE [Concomitant]
     Indication: ATRIAL FIBRILLATION
     Route: 048
  2. CARDENSIEL 2,5 MG, COMPRIME PELLICULE SECABLE [Concomitant]
     Indication: HYPERTENSION
     Route: 048
  3. OLANZAPINE. [Suspect]
     Active Substance: OLANZAPINE
     Indication: ACCIDENTAL EXPOSURE TO PRODUCT
     Dosage: ()
     Route: 048
     Dates: start: 2018, end: 2018
  4. SERESTA [Suspect]
     Active Substance: OXAZEPAM
     Indication: INSOMNIA
     Dosage: ()
     Route: 048
     Dates: start: 2018
  5. IZALGI 500 MG/25 MG, GELULE [Suspect]
     Active Substance: ACETAMINOPHEN\OPIUM
     Indication: ACCIDENTAL EXPOSURE TO PRODUCT
     Route: 048
     Dates: start: 201803, end: 201803
  6. ZYLORIC 100 MG, COMPRIME [Concomitant]
     Active Substance: ALLOPURINOL
     Indication: PRODUCT USED FOR UNKNOWN INDICATION
     Route: 048
  7. FUROSEMIDE. [Concomitant]
     Active Substance: FUROSEMIDE
     Indication: HYPERTENSION
     Route: 048

REACTIONS (1)
  - Coma [Fatal]

NARRATIVE: CASE EVENT DATE: 20180303
